FAERS Safety Report 8315309-9 (Version None)
Quarter: 2012Q2

REPORT INFORMATION
  Report Type: 
  Country: None (occurrence: None)
  Receive Date: 20120426
  Receipt Date: 20120330
  Transmission Date: 20120825
  Serious: Yes (Other)
  Sender: FDA-Public Use
  Company Number: US-BAYER-2011-116098

PATIENT
  Age: 50 Year
  Sex: Female

DRUGS (1)
  1. NAPROXEN SODIUM [Suspect]
     Indication: PAIN
     Dosage: 2 DF
     Dates: start: 20110801, end: 20110908

REACTIONS (2)
  - HEADACHE [None]
  - NAUSEA [None]
